FAERS Safety Report 12184175 (Version 3)
Quarter: 2016Q2

REPORT INFORMATION
  Report Type: Spontaneous
  Country: US (occurrence: US)
  Receive Date: 20160316
  Receipt Date: 20160614
  Transmission Date: 20160815
  Serious: No
  Sender: FDA-Public Use
  Company Number: US-B.I. PHARMACEUTICALS,INC./RIDGEFIELD-2016-BI-12387BP

PATIENT
  Sex: Male

DRUGS (1)
  1. FLOMAX [Suspect]
     Active Substance: TAMSULOSIN HYDROCHLORIDE
     Indication: PRODUCT USED FOR UNKNOWN INDICATION
     Dosage: 0.4 MG
     Route: 048

REACTIONS (10)
  - Hypoaesthesia [Unknown]
  - Erectile dysfunction [Recovered/Resolved]
  - Priapism [Recovered/Resolved]
  - Vascular injury [Recovered/Resolved]
  - Medication error [Recovered/Resolved]
  - Drug dispensing error [Recovered/Resolved]
  - Painful erection [Recovered/Resolved]
  - Hypoaesthesia [Recovered/Resolved]
  - Nerve injury [Recovered/Resolved]
  - Erectile dysfunction [Not Recovered/Not Resolved]
